FAERS Safety Report 9861918 (Version 4)
Quarter: 2015Q1

REPORT INFORMATION
  Report Type: Spontaneous
  Country: US (occurrence: US)
  Receive Date: 20140203
  Receipt Date: 20150119
  Transmission Date: 20150721
  Serious: Yes (Death, Life-Threatening, Hospitalization, Other)
  Sender: FDA-Public Use
  Company Number: US-009507513-1401USA014686

PATIENT
  Sex: Female
  Weight: 68.27 kg

DRUGS (1)
  1. JANUMET [Suspect]
     Active Substance: METFORMIN HYDROCHLORIDE\SITAGLIPTIN PHOSPHATE
     Indication: TYPE 2 DIABETES MELLITUS
     Dosage: 50-1000 MG, BID
     Route: 048
     Dates: start: 20100422, end: 20100907

REACTIONS (18)
  - Rash [Unknown]
  - Splenic infarction [Unknown]
  - Dementia [Unknown]
  - Anxiety [Unknown]
  - Blood cholesterol increased [Unknown]
  - Cholecystectomy [Unknown]
  - Radiotherapy [Unknown]
  - Gallbladder disorder [Recovered/Resolved]
  - Sarcoidosis [Unknown]
  - Depression [Unknown]
  - Adenocarcinoma pancreas [Fatal]
  - Herpes zoster [Unknown]
  - Radiotherapy [Unknown]
  - Schizophrenia, paranoid type [Unknown]
  - Hypertension [Unknown]
  - Arthralgia [Unknown]
  - Explorative laparotomy [Unknown]
  - Radiotherapy [Unknown]

NARRATIVE: CASE EVENT DATE: 201012
